FAERS Safety Report 5357341-3 (Version None)
Quarter: 2007Q2

REPORT INFORMATION
  Report Type: 
  Country: None (occurrence: None)
  Receive Date: 20070614
  Receipt Date: 20070611
  Transmission Date: 20071010
  Serious: Yes (Hospitalization)
  Sender: FDA-Public Use
  Company Number: A0655053A

PATIENT
  Sex: Female

DRUGS (2)
  1. LAMICTAL [Suspect]
     Indication: BIPOLAR DISORDER
     Dosage: 100MG PER DAY
     Route: 048
     Dates: start: 20070101, end: 20070101
  2. ZOLOFT [Concomitant]

REACTIONS (4)
  - PYREXIA [None]
  - RASH [None]
  - SCAR [None]
  - STEVENS-JOHNSON SYNDROME [None]
